FAERS Safety Report 16195686 (Version 2)
Quarter: 2019Q4

REPORT INFORMATION
  Report Type: Spontaneous
  Country: US (occurrence: US)
  Receive Date: 20190415
  Receipt Date: 20191004
  Transmission Date: 20200122
  Serious: Yes (Hospitalization)
  Sender: FDA-Public Use
  Company Number: US-SUN PHARMACEUTICAL INDUSTRIES LTD-2019R1-205300

PATIENT
  Age: 70 Year
  Sex: Female

DRUGS (1)
  1. LITHIUM. [Suspect]
     Active Substance: LITHIUM
     Indication: BIPOLAR DISORDER
     Dosage: UNK
     Route: 065

REACTIONS (7)
  - Nephrogenic diabetes insipidus [Recovering/Resolving]
  - Hypernatraemia [Recovered/Resolved]
  - Confusional state [Recovering/Resolving]
  - Anxiety [Recovering/Resolving]
  - Tremor [Unknown]
  - Agitation [Recovering/Resolving]
  - Condition aggravated [Recovering/Resolving]
